FAERS Safety Report 25186602 (Version 1)
Quarter: 2025Q2

REPORT INFORMATION
  Report Type: Spontaneous
  Country: US (occurrence: US)
  Receive Date: 20250411
  Receipt Date: 20250411
  Transmission Date: 20250717
  Serious: Yes (Hospitalization, Other)
  Sender: AUROBINDO
  Company Number: US-MLMSERVICE-20250320-PI451475-00108-1

PATIENT
  Age: 34 Year
  Sex: Male

DRUGS (2)
  1. CLOZAPINE [Suspect]
     Active Substance: CLOZAPINE
     Indication: Schizophrenia
     Route: 065
  2. RISPERIDONE [Concomitant]
     Active Substance: RISPERIDONE
     Indication: Schizophrenia
     Route: 065

REACTIONS (2)
  - Myocarditis [Recovered/Resolved]
  - Pericardial effusion [Recovered/Resolved]
